FAERS Safety Report 13036025 (Version 1)
Quarter: 2016Q4

REPORT INFORMATION
  Report Type: Report from Study
  Country: US (occurrence: US)
  Receive Date: 20161216
  Receipt Date: 20161216
  Transmission Date: 20170207
  Serious: Yes (Hospitalization, Other)
  Sender: FDA-Public Use
  Company Number: US-BIOGEN-2014BI053601

PATIENT
  Age: 47 Year
  Sex: Male

DRUGS (3)
  1. SUBOXONE [Concomitant]
     Active Substance: BUPRENORPHINE HYDROCHLORIDE\NALOXONE HYDROCHLORIDE
     Indication: PRODUCT USED FOR UNKNOWN INDICATION
     Route: 048
     Dates: start: 2014
  2. TYSABRI [Suspect]
     Active Substance: NATALIZUMAB
     Indication: MULTIPLE SCLEROSIS
     Route: 042
     Dates: start: 20130919
  3. OXYCODONE [Concomitant]
     Active Substance: OXYCODONE
     Indication: PRODUCT USED FOR UNKNOWN INDICATION
     Route: 048
     Dates: start: 201403

REACTIONS (32)
  - Sepsis [Recovered/Resolved]
  - Resuscitation [Recovered/Resolved]
  - Pain [Not Recovered/Not Resolved]
  - Alopecia [Unknown]
  - Memory impairment [Not Recovered/Not Resolved]
  - Brain injury [Not Recovered/Not Resolved]
  - Catatonia [Recovered/Resolved]
  - Somnolence [Not Recovered/Not Resolved]
  - Swelling [Unknown]
  - Unresponsive to stimuli [Unknown]
  - Gait disturbance [Unknown]
  - Overdose [Recovered/Resolved]
  - Weight decreased [Not Recovered/Not Resolved]
  - Multiple fractures [Recovered/Resolved]
  - Dyslexia [Not Recovered/Not Resolved]
  - Speech disorder [Unknown]
  - Eating disorder [Unknown]
  - Hallucination, auditory [Unknown]
  - Generalised tonic-clonic seizure [Not Recovered/Not Resolved]
  - Respiratory failure [Recovered/Resolved]
  - Tracheostomy [Not Recovered/Not Resolved]
  - Skull fracture [Unknown]
  - Asthenia [Not Recovered/Not Resolved]
  - Scar [Unknown]
  - Fall [Recovered/Resolved]
  - Surgery [Recovered/Resolved]
  - Cognitive disorder [Not Recovered/Not Resolved]
  - Thrombosis [Not Recovered/Not Resolved]
  - Coma [Recovered/Resolved]
  - Muscle disorder [Not Recovered/Not Resolved]
  - Epilepsy [Not Recovered/Not Resolved]
  - Cardiac arrest [Recovered/Resolved]

NARRATIVE: CASE EVENT DATE: 201403
